FAERS Safety Report 5536265-2 (Version None)
Quarter: 2007Q4

REPORT INFORMATION
  Report Type: 
  Country: None (occurrence: None)
  Receive Date: 20071206
  Receipt Date: 20071205
  Transmission Date: 20080405
  Serious: No
  Sender: FDA-Public Use
  Company Number: US-BOEHRINGER INGELHEIM PHARMACEUTICALS, INC.-2007-BP-24621BP

PATIENT
  Sex: Male

DRUGS (11)
  1. SPIRIVA [Suspect]
     Indication: CHRONIC OBSTRUCTIVE PULMONARY DISEASE
     Route: 055
     Dates: start: 20061101
  2. SPIRIVA [Suspect]
     Indication: ASTHMA
  3. SPIRIVA [Suspect]
     Indication: ASBESTOSIS
  4. HYTRIN [Concomitant]
     Indication: HYPERTENSION
  5. HYTRIN [Concomitant]
     Indication: BENIGN PROSTATIC HYPERPLASIA
  6. ALBUTEROL [Concomitant]
     Indication: ASTHMA
  7. ALBUTEROL [Concomitant]
     Indication: CHRONIC OBSTRUCTIVE PULMONARY DISEASE
  8. ADVAIR DISKUS 100/50 [Concomitant]
  9. SINGULAIR [Concomitant]
  10. TERAZOSIN HCL [Concomitant]
  11. PROAIR HFA [Concomitant]

REACTIONS (1)
  - NOCTURIA [None]
